FAERS Safety Report 17655817 (Version 1)
Quarter: 2020Q2

REPORT INFORMATION
  Report Type: Report from Study
  Country: CN (occurrence: CN)
  Receive Date: 20200410
  Receipt Date: 20200410
  Transmission Date: 20200713
  Serious: Yes (Other)
  Sender: FDA-Public Use
  Company Number: CN-ELI_LILLY_AND_COMPANY-CN202004001464

PATIENT
  Age: 69 Year
  Sex: Female

DRUGS (1)
  1. INSULIN, HUMAN [Suspect]
     Active Substance: INSULIN HUMAN
     Indication: DIABETES MELLITUS
     Dosage: UNK UNK, BID
     Route: 058
     Dates: start: 20200323, end: 20200330

REACTIONS (2)
  - Injection site papule [Recovering/Resolving]
  - Papule [Recovering/Resolving]
